FAERS Safety Report 7659363-6 (Version None)
Quarter: 2011Q3

REPORT INFORMATION
  Report Type: 
  Country: None (occurrence: None)
  Receive Date: 20110729
  Receipt Date: 20110520
  Transmission Date: 20111222
  Serious: Yes (Hospitalization)
  Sender: FDA-Public Use
  Company Number: 2011-0517

PATIENT
  Age: 56 Year
  Sex: Female
  Weight: 61.2 kg

DRUGS (9)
  1. FOLIC ACID [Concomitant]
  2. METHOTREXATE [Concomitant]
  3. PROBIOTICS (ALL OTHER NON-THERAPEUTIC PRODUCTS) [Concomitant]
  4. SOMATULINE DEPOT [Suspect]
     Indication: ACROMEGALY
     Dosage: 60 MG (60 MG, 1 IN 28 D), SUBCUTANEOUS
     Route: 058
     Dates: start: 20110226
  5. FISH OIL (FISH OIL) [Concomitant]
  6. CALCIUM (CALCIUM) [Concomitant]
  7. VITAMIN D [Concomitant]
  8. ETODOLAC [Concomitant]
  9. CLONAZEPAM [Concomitant]

REACTIONS (6)
  - NEPHROLITHIASIS [None]
  - CHOLELITHIASIS [None]
  - FAECALOMA [None]
  - BLOOD GLUCOSE DECREASED [None]
  - HYPOTENSION [None]
  - DIARRHOEA [None]
